FAERS Safety Report 10903943 (Version 1)
Quarter: 2015Q1

REPORT INFORMATION
  Report Type: Spontaneous
  Country: JP (occurrence: JP)
  Receive Date: 20150311
  Receipt Date: 20150311
  Transmission Date: 20150721
  Serious: Yes (Hospitalization)
  Sender: FDA-Public Use
  Company Number: JP-SA-2015SA028078

PATIENT
  Age: 70 Year
  Sex: Male
  Weight: 59 kg

DRUGS (5)
  1. BAYASPIRIN [Suspect]
     Active Substance: ASPIRIN
     Route: 048
     Dates: end: 20141011
  2. PLAVIX [Suspect]
     Active Substance: CLOPIDOGREL BISULFATE
     Route: 048
     Dates: end: 20140912
  3. PLAVIX [Suspect]
     Active Substance: CLOPIDOGREL BISULFATE
     Route: 048
     Dates: end: 20141011
  4. BAYASPIRIN [Suspect]
     Active Substance: ASPIRIN
     Route: 048
     Dates: end: 20140912
  5. ELIQUIS [Suspect]
     Active Substance: APIXABAN
     Route: 048
     Dates: end: 20141013

REACTIONS (4)
  - Fall [Unknown]
  - Brain contusion [Recovering/Resolving]
  - Cerebral haemorrhage [Recovering/Resolving]
  - Subarachnoid haemorrhage [Recovering/Resolving]

NARRATIVE: CASE EVENT DATE: 20141011
